FAERS Safety Report 24118330 (Version 1)
Quarter: 2024Q3

REPORT INFORMATION
  Report Type: Spontaneous
  Country: JP (occurrence: JP)
  Receive Date: 20240722
  Receipt Date: 20240722
  Transmission Date: 20241017
  Serious: Yes (Death, Hospitalization, Other)
  Sender: MERCK
  Company Number: JP-MSD-2204JPN002710J

PATIENT
  Age: 83 Year
  Sex: Female
  Weight: 48 kg

DRUGS (5)
  1. KEYTRUDA [Suspect]
     Active Substance: PEMBROLIZUMAB
     Indication: Lung neoplasm malignant
     Dosage: 200 MILLIGRAM, QD
     Route: 041
     Dates: start: 20220120, end: 20220120
  2. KEYTRUDA [Suspect]
     Active Substance: PEMBROLIZUMAB
     Indication: PD-L1 positive cancer
  3. THROMBOMODULIN ALFA [Concomitant]
     Active Substance: THROMBOMODULIN ALFA
     Dosage: UNK
     Route: 065
     Dates: start: 20220119, end: 20220125
  4. OLMESARTAN MEDOXOMIL [Concomitant]
     Active Substance: OLMESARTAN MEDOXOMIL
     Dosage: 20 MILLIGRAM
     Route: 048
  5. SITAGLIPTIN [Concomitant]
     Active Substance: SITAGLIPTIN
     Dosage: 25 MILLIGRAM
     Route: 048

REACTIONS (3)
  - Disseminated intravascular coagulation [Fatal]
  - Malignant neoplasm progression [Unknown]
  - Immune-mediated pancreatitis [Unknown]

NARRATIVE: CASE EVENT DATE: 20220101
